FAERS Safety Report 4904044-2 (Version None)
Quarter: 2006Q1

REPORT INFORMATION
  Report Type: 
  Country: None (occurrence: None)
  Receive Date: 20060203
  Receipt Date: 20060130
  Transmission Date: 20060701
  Serious: Yes (Hospitalization)
  Sender: FDA-Public Use
  Company Number: 2006013760

PATIENT
  Age: 85 Year
  Sex: Female
  Weight: 56 kg

DRUGS (7)
  1. NEURONTIN [Suspect]
     Indication: PAIN
     Dosage: 1300 MG (DAILY), ORAL
     Route: 048
     Dates: end: 20050922
  2. BACLOFEN [Suspect]
     Indication: PAIN
     Dosage: 50 MG (50 MG, 1 IN 1 D), ORAL
     Route: 048
     Dates: end: 20050922
  3. LORAZEPAM [Suspect]
     Indication: ILL-DEFINED DISORDER
     Dosage: ORAL
     Route: 048
     Dates: end: 20050901
  4. TOFRANIL [Suspect]
     Dosage: 75 MG (75 MG, 1 IN1 D), ORAL
     Route: 048
     Dates: end: 20050922
  5. SEROQUEL [Suspect]
     Indication: SLEEP DISORDER
     Dosage: 25 MG(25 MG, 1 IN 1 D), ORAL
     Route: 048
     Dates: start: 20050901, end: 20050922
  6. AULIN (NIMESULIDE) [Concomitant]
  7. NEXIUM [Concomitant]

REACTIONS (7)
  - AGITATION [None]
  - COMA [None]
  - CONFUSIONAL STATE [None]
  - DRUG INTERACTION [None]
  - INSOMNIA [None]
  - OVERDOSE [None]
  - SOPOR [None]
